FAERS Safety Report 9260071 (Version 1)
Quarter: 2013Q2

REPORT INFORMATION
  Report Type: Spontaneous
  Country: HR (occurrence: HR)
  Receive Date: 20130429
  Receipt Date: 20130429
  Transmission Date: 20140414
  Serious: Yes (Hospitalization, Other)
  Sender: FDA-Public Use
  Company Number: HR-JNJFOC-20130410332

PATIENT
  Age: 33 Year
  Sex: Female

DRUGS (17)
  1. RISPOLEPT [Suspect]
     Indication: SCHIZOPHRENIA
     Dosage: DOSING: 1,0,2 MG
     Route: 048
  2. RISPOLEPT [Suspect]
     Indication: SCHIZOPHRENIA
     Dosage: 4 MG IN THE EVENING
     Route: 048
     Dates: start: 2006
  3. RISPOLEPT [Suspect]
     Indication: SCHIZOPHRENIA
     Route: 048
     Dates: start: 2000
  4. RISPOLEPT [Suspect]
     Indication: SCHIZOPHRENIA
     Dosage: DOSING: 4,0,4 MG
     Route: 048
     Dates: start: 2005
  5. RISPOLEPT [Suspect]
     Indication: SCHIZOPHRENIA
     Dosage: DOSING: 2,0,4 MG
     Route: 048
     Dates: start: 2004
  6. RISPOLEPT [Suspect]
     Indication: SCHIZOPHRENIA
     Route: 048
     Dates: start: 20121030
  7. RISPOLEPT CONSTA [Suspect]
     Indication: SCHIZOPHRENIA
     Route: 050
     Dates: start: 20060928
  8. RISPOLEPT CONSTA [Suspect]
     Indication: SCHIZOPHRENIA
     Route: 050
     Dates: start: 20121030
  9. NORMABEL [Suspect]
     Indication: PRODUCT USED FOR UNKNOWN INDICATION
     Route: 065
  10. NORMABEL [Suspect]
     Indication: PRODUCT USED FOR UNKNOWN INDICATION
     Dosage: 5-10 MG
     Route: 065
     Dates: start: 20121030
  11. NORMABEL [Suspect]
     Indication: PRODUCT USED FOR UNKNOWN INDICATION
     Dosage: DOSING: 0,0,10 MG
     Route: 065
     Dates: start: 2000
  12. AKINETON [Suspect]
     Indication: PRODUCT USED FOR UNKNOWN INDICATION
     Route: 065
     Dates: start: 2000
  13. XANAX [Suspect]
     Indication: PRODUCT USED FOR UNKNOWN INDICATION
     Route: 065
     Dates: start: 2005
  14. XANAX [Suspect]
     Indication: PRODUCT USED FOR UNKNOWN INDICATION
     Route: 065
     Dates: start: 20060928
  15. XANAX [Suspect]
     Indication: PRODUCT USED FOR UNKNOWN INDICATION
     Route: 065
     Dates: start: 2004
  16. PROZAC [Suspect]
     Indication: PRODUCT USED FOR UNKNOWN INDICATION
     Dosage: 5 ML IN THE MORNING.
     Route: 065
  17. ZOLOFT [Suspect]
     Indication: PRODUCT USED FOR UNKNOWN INDICATION
     Dosage: DOSING: 1,0,0
     Route: 065

REACTIONS (5)
  - Schizophrenia [Not Recovered/Not Resolved]
  - Pseudodementia [Unknown]
  - Exposure during pregnancy [Recovered/Resolved]
  - Glucose tolerance impaired [Unknown]
  - Insomnia [Unknown]
